FAERS Safety Report 15802359 (Version 1)
Quarter: 2019Q1

REPORT INFORMATION
  Report Type: Spontaneous
  Country: US (occurrence: US)
  Receive Date: 20190104
  Receipt Date: 20190104
  Transmission Date: 20190417
  Serious: Yes (Disabling, Other)
  Sender: FDA-Public Use
  Company Number: None

PATIENT
  Age: 44 Year
  Sex: Female
  Weight: 60.75 kg

DRUGS (1)
  1. CBDROP FULL SPECTRUM OIL [Suspect]
     Active Substance: CANNABIDIOL\HERBALS
     Indication: PAIN
     Dosage: ?          QUANTITY:30 ML;?
     Route: 060
     Dates: start: 20190101, end: 20190101

REACTIONS (7)
  - Throat irritation [None]
  - Dyspepsia [None]
  - Burn oral cavity [None]
  - Product deposit [None]
  - Migraine [None]
  - Oesophagitis chemical [None]
  - Liquid product physical issue [None]

NARRATIVE: CASE EVENT DATE: 20190101
